FAERS Safety Report 22900996 (Version 3)
Quarter: 2023Q4

REPORT INFORMATION
  Report Type: Other
  Country: PT (occurrence: PT)
  Receive Date: 20230904
  Receipt Date: 20231202
  Transmission Date: 20240109
  Serious: Yes (Death)
  Sender: FDA-Public Use
  Company Number: PT-AMGEN-PRTSP2023147809

PATIENT
  Age: 48 Year
  Sex: Female

DRUGS (14)
  1. BEVACIZUMAB [Suspect]
     Active Substance: BEVACIZUMAB
     Indication: Colon cancer metastatic
     Dosage: AS 5-FLUOROURACIL-BEVACIZUMAB
     Route: 065
  2. BEVACIZUMAB [Suspect]
     Active Substance: BEVACIZUMAB
     Dosage: AS FOLFOX-BEVACIZUMAB (LEUCOVORIN, FLUOROURACIL, OXALIPLATIN, BEVACIZUMAB)
     Route: 065
  3. OXALIPLATIN [Suspect]
     Active Substance: OXALIPLATIN
     Indication: Colon cancer metastatic
     Dosage: AS FOLFOX-BEVACIZUMAB (LEUCOVORIN, FLUOROURACIL, OXALIPLATIN, BEVACIZUMAB)
     Route: 065
  4. OXALIPLATIN [Suspect]
     Active Substance: OXALIPLATIN
     Dosage: AS DE GRAMMOND-PANITUMUMAB REGIMEN (LEUCOVORIN, FLUOROURACIL, OXALIPLATIN, PANITUMUMAB)
     Route: 065
  5. FLUOROURACIL [Suspect]
     Active Substance: FLUOROURACIL
     Indication: Colon cancer metastatic
     Dosage: AS 5-FLUOROURACIL-BEVACIZUMAB
     Route: 065
  6. FLUOROURACIL [Suspect]
     Active Substance: FLUOROURACIL
     Dosage: AS FOLFOX-BEVACIZUMAB (LEUCOVORIN, FLUOROURACIL, OXALIPLATIN, BEVACIZUMAB)
     Route: 065
  7. FLUOROURACIL [Suspect]
     Active Substance: FLUOROURACIL
     Dosage: AS DE GRAMMOND-PANITUMUMAB REGIMEN (LEUCOVORIN, FLUOROURACIL, OXALIPLATIN, PANITUMUMAB)
     Route: 065
  8. IRINOTECAN [Suspect]
     Active Substance: IRINOTECAN
     Indication: Colon cancer metastatic
     Dosage: AS FOLFIRI (LEUCOVORIN, FLUOROURACIL AND IRINOTECAN) WITH PANITUMUMAB
     Route: 065
  9. PANITUMUMAB [Suspect]
     Active Substance: PANITUMUMAB
     Indication: Colon cancer metastatic
     Dosage: AS FOLFIRI (LEUCOVORIN, FLUOROURACIL AND IRINOTECAN) WITH PANITUMUMAB
     Route: 065
  10. PANITUMUMAB [Suspect]
     Active Substance: PANITUMUMAB
     Dosage: AS DE GRAMMOND-PANITUMUMAB REGIMEN (LEUCOVORIN, FLUOROURACIL, OXALIPLATIN, PANITUMUMAB)
     Route: 065
  11. LEUCOVORIN [Suspect]
     Active Substance: LEUCOVORIN\LEUCOVORIN CALCIUM
     Indication: Colon cancer metastatic
     Dosage: DE GRAMMOND-PANITUMUMAB REGIMEN (LEUCOVORIN, FLUOROURACIL, OXALIPLATIN, PANITUMUMAB)
     Route: 065
  12. LEUCOVORIN [Suspect]
     Active Substance: LEUCOVORIN\LEUCOVORIN CALCIUM
     Dosage: AS FOLFIRI (LEUCOVORIN, FLUOROURACIL AND IRINOTECAN) WITH PANITUMUMAB
     Route: 065
  13. LEUCOVORIN [Suspect]
     Active Substance: LEUCOVORIN\LEUCOVORIN CALCIUM
     Dosage: AS FOLFOX-BEVACIZUMAB (LEUCOVORIN, FLUOROURACIL, OXALIPLATIN, BEVACIZUMAB)
     Route: 065
  14. FOLIC ACID [Concomitant]
     Active Substance: FOLIC ACID

REACTIONS (3)
  - Disease progression [Fatal]
  - Metastases to liver [Fatal]
  - Metastases to lymph nodes [Fatal]
